FAERS Safety Report 10765175 (Version 1)
Quarter: 2015Q1

REPORT INFORMATION
  Report Type: Spontaneous
  Country: IT (occurrence: None)
  Receive Date: 20150203
  Receipt Date: 20150203
  Transmission Date: 20150721
  Serious: Yes (Hospitalization)
  Sender: FDA-Public Use
  Company Number: 2719453

PATIENT
  Age: 85 Year
  Sex: Female

DRUGS (4)
  1. ULTRAVIST [Suspect]
     Active Substance: IOPROMIDE
     Indication: INSERTION OF AMBULATORY PERITONEAL CATHETER
     Route: 042
     Dates: start: 20141118, end: 20141118
  2. CEFAZOLIN [Suspect]
     Active Substance: CEFAZOLIN
     Indication: INSERTION OF AMBULATORY PERITONEAL CATHETER
     Route: 042
     Dates: start: 20141118, end: 20141118
  3. MIDAZOLAM HYDROCHLORIDE. [Suspect]
     Active Substance: MIDAZOLAM HYDROCHLORIDE
     Indication: INSERTION OF AMBULATORY PERITONEAL CATHETER
     Route: 042
     Dates: start: 20141118, end: 20141118
  4. FUROSEMIDE. [Concomitant]
     Active Substance: FUROSEMIDE

REACTIONS (2)
  - Bronchostenosis [None]
  - Tongue oedema [None]

NARRATIVE: CASE EVENT DATE: 20141118
